FAERS Safety Report 4765062-0 (Version None)
Quarter: 2005Q3

REPORT INFORMATION
  Report Type: 
  Country: None (occurrence: None)
  Receive Date: 20050907
  Receipt Date: 20050824
  Transmission Date: 20060218
  Serious: Yes (Hospitalization, Other)
  Sender: FDA-Public Use
  Company Number: 2005121248

PATIENT
  Age: 78 Year
  Sex: Female
  Weight: 53.0709 kg

DRUGS (7)
  1. XALATAN [Suspect]
     Indication: INTRAOCULAR PRESSURE INCREASED
  2. ASPIRIN [Concomitant]
  3. METOPROLOL TARTRATE [Concomitant]
  4. PROTONIX [Concomitant]
  5. EFFEXOR [Concomitant]
  6. ADVAIR DISKUS 100/50 [Concomitant]
  7. VITAMINS (VITAMINS) [Concomitant]

REACTIONS (11)
  - BLOOD CHOLESTEROL INCREASED [None]
  - CATARACT OPERATION [None]
  - CONTUSION [None]
  - CONVULSION [None]
  - EYE HAEMORRHAGE [None]
  - INCORRECT DOSE ADMINISTERED [None]
  - LOSS OF CONSCIOUSNESS [None]
  - LUNG DISORDER [None]
  - MACULAR DEGENERATION [None]
  - MYOCARDIAL INFARCTION [None]
  - OCULAR HYPERAEMIA [None]
